FAERS Safety Report 5062564-7 (Version None)
Quarter: 2006Q3

REPORT INFORMATION
  Report Type: 
  Country: None (occurrence: None)
  Receive Date: 20060726
  Receipt Date: 20060719
  Transmission Date: 20061208
  Serious: Yes (Other)
  Sender: FDA-Public Use
  Company Number: GB-SANOFI-SYNTHELABO-A01200605707

PATIENT
  Age: 42 Year
  Sex: Male

DRUGS (3)
  1. CAPE [Concomitant]
  2. ELOXATIN [Suspect]
     Dosage: UNK
     Route: 041
  3. ELOXATIN [Suspect]
     Dosage: UNK
     Route: 041

REACTIONS (4)
  - ANAPHYLACTOID REACTION [None]
  - CHEST PAIN [None]
  - MUSCLE SPASMS [None]
  - MUSCLE TWITCHING [None]
